FAERS Safety Report 7376349-X (Version None)
Quarter: 2011Q1

REPORT INFORMATION
  Report Type: 
  Country: None (occurrence: None)
  Receive Date: 20110316
  Receipt Date: 20110310
  Transmission Date: 20110831
  Serious: Yes (Death, Hospitalization)
  Sender: FDA-Public Use
  Company Number: 2010SP012801

PATIENT
  Age: 60 Year
  Sex: Female
  Weight: 58.514 kg

DRUGS (6)
  1. NUVARING [Suspect]
     Indication: POLLAKIURIA
     Dosage: VAG
     Route: 067
     Dates: start: 20061024, end: 20070102
  2. NUVARING [Suspect]
     Indication: MICTURITION URGENCY
     Dosage: VAG
     Route: 067
     Dates: start: 20061024, end: 20070102
  3. SYNTHROID [Concomitant]
  4. THYROID TAB [Concomitant]
  5. COMBIPATCH [Concomitant]
  6. LUNESTA [Concomitant]

REACTIONS (13)
  - DYSPNOEA [None]
  - LIP INJURY [None]
  - BLOOD GLUCOSE INCREASED [None]
  - PROTEIN TOTAL DECREASED [None]
  - MALAISE [None]
  - BLOOD ALBUMIN DECREASED [None]
  - BLOOD POTASSIUM DECREASED [None]
  - SINUS TACHYCARDIA [None]
  - ELECTROCARDIOGRAM ABNORMAL [None]
  - CONFUSIONAL STATE [None]
  - VOMITING [None]
  - RESPIRATORY RATE INCREASED [None]
  - BLOOD CALCIUM DECREASED [None]
